FAERS Safety Report 8336534-7 (Version None)
Quarter: 2012Q2

REPORT INFORMATION
  Report Type: 
  Country: None (occurrence: None)
  Receive Date: 20120504
  Receipt Date: 20120426
  Transmission Date: 20120825
  Serious: Yes (Other)
  Sender: FDA-Public Use
  Company Number: US-B.I. PHARMACEUTICALS,INC./RIDGEFIELD-2012-EU-02398GD

PATIENT
  Age: 32 Year
  Sex: Female

DRUGS (8)
  1. ALBUTEROL [Suspect]
     Indication: ASTHMA
     Dosage: AS NEEDED
  2. FLUTICASONE PROPIONATE/SALMETEROL [Suspect]
     Indication: ASTHMA
     Dosage: STRENGT: 500MCG/50MCG
     Route: 055
  3. ALBUTEROL [Suspect]
     Route: 055
  4. MONTELUKAST [Concomitant]
     Indication: ASTHMA
     Dosage: 10 MG
  5. METHYLPREDNISOLONE [Concomitant]
     Indication: ASTHMA
     Route: 042
  6. IPRATROPIUM BROMIDE AND ALBUTEROL SULFATE [Suspect]
     Indication: ASTHMA
     Dosage: STRENGTH: ALBUTEROL 2.5 MG
     Route: 055
  7. TERBUTALINE [Suspect]
     Indication: ASTHMA
     Dosage: 0.5 MG
     Route: 058
  8. MAGNESIUM SULFATE [Concomitant]
     Indication: ASTHMA
     Route: 042

REACTIONS (7)
  - BLOOD POTASSIUM DECREASED [None]
  - BLOOD CALCIUM DECREASED [None]
  - BLOOD GLUCOSE INCREASED [None]
  - LACTIC ACIDOSIS [None]
  - CONDITION AGGRAVATED [None]
  - BLOOD PRESSURE DIASTOLIC DECREASED [None]
  - ASTHMA [None]
